FAERS Safety Report 11862489 (Version 1)
Quarter: 2015Q4

REPORT INFORMATION
  Report Type: Spontaneous
  Country: US (occurrence: None)
  Receive Date: 20151222
  Receipt Date: 20151222
  Transmission Date: 20160305
  Serious: No
  Sender: FDA-Public Use
  Company Number: None

PATIENT
  Age: 50 Year
  Sex: Male

DRUGS (2)
  1. GLIMEPIRIDE. [Suspect]
     Active Substance: GLIMEPIRIDE
  2. TOUJEO [Suspect]
     Active Substance: INSULIN GLARGINE

REACTIONS (4)
  - Diet noncompliance [None]
  - Flank pain [None]
  - Glycosylated haemoglobin increased [None]
  - Swelling [None]
